FAERS Safety Report 5591046-9 (Version None)
Quarter: 2008Q1

REPORT INFORMATION
  Report Type: 
  Country: None (occurrence: None)
  Receive Date: 20080115
  Receipt Date: 20080107
  Transmission Date: 20080703
  Serious: Yes (Other)
  Sender: FDA-Public Use
  Company Number: PHNU2008DE00469

PATIENT
  Age: 53 Year
  Sex: Female

DRUGS (6)
  1. SEBIVO [Suspect]
     Dosage: 600 MG, Q96H
     Route: 048
     Dates: start: 20070716, end: 20070720
  2. KELTICAN /OLD FORM/ [Concomitant]
  3. RENAGEL [Concomitant]
  4. SODIUM BICARBONATE [Concomitant]
  5. CINACALCET [Concomitant]
  6. ROCALTROL [Concomitant]

REACTIONS (1)
  - OPHTHALMOPLEGIA [None]
